FAERS Safety Report 17347846 (Version 1)
Quarter: 2020Q1

REPORT INFORMATION
  Report Type: Report from Study
  Country: US (occurrence: US)
  Receive Date: 20200129
  Receipt Date: 20200129
  Transmission Date: 20200409
  Serious: No
  Sender: FDA-Public Use
  Company Number: US-EXELIXIS-CABO-19025370

PATIENT
  Sex: Male

DRUGS (3)
  1. CABOMETYX [Suspect]
     Active Substance: CABOZANTINIB S-MALATE
     Indication: MALIGNANT CONNECTIVE TISSUE NEOPLASM
     Dosage: 60 MG (HS NO FOOD 2 HRS PRIOR AND 1 HR AFTER)
     Dates: start: 20191017
  2. CABOMETYX [Suspect]
     Active Substance: CABOZANTINIB S-MALATE
     Indication: SOFT TISSUE SARCOMA
  3. CABOMETYX [Suspect]
     Active Substance: CABOZANTINIB S-MALATE
     Indication: DESMOPLASTIC SMALL ROUND CELL TUMOUR

REACTIONS (6)
  - Hypoaesthesia oral [Unknown]
  - Pain [Unknown]
  - Dry throat [Unknown]
  - Taste disorder [Unknown]
  - Off label use [Unknown]
  - Diarrhoea [Recovering/Resolving]
